FAERS Safety Report 4554887-2 (Version None)
Quarter: 2004Q4

REPORT INFORMATION
  Report Type: 
  Country: None (occurrence: None)
  Receive Date: 20041222
  Receipt Date: 20040831
  Transmission Date: 20050328
  Serious: Yes (Hospitalization)
  Sender: FDA-Public Use
  Company Number: 208667

PATIENT
  Age: 67 Year
  Sex: Female

DRUGS (14)
  1. AVASTIN [Suspect]
     Indication: COLON CANCER METASTATIC
     Dosage: 290 MG, Q2W, INTRAVENOUS
     Route: 042
     Dates: start: 20040518, end: 20040701
  2. FLUOROURACIL [Concomitant]
  3. OXALIPLATIN (OXALIPLATIN) [Concomitant]
  4. LEUCOVORIN CALCIUM [Concomitant]
  5. MAXZIDE [Concomitant]
  6. VERAPAMIL [Concomitant]
  7. LIPITOR [Concomitant]
  8. ACTONEL [Concomitant]
  9. MV1 (MULTIVITAMINS NOS) [Concomitant]
  10. OS-CAL (CALCIUM CARBONATE) [Concomitant]
  11. VITAMIN C (ASCORBIC ACID) [Concomitant]
  12. VITAMIN E [Concomitant]
  13. VIACTIV (CALCIUM CARBONATE, CHOLECALCIFEROL, PHYTONADIONE) [Concomitant]
  14. ASPIRIN [Concomitant]

REACTIONS (4)
  - HYPOTENSION [None]
  - INFUSION RELATED REACTION [None]
  - LOSS OF CONSCIOUSNESS [None]
  - PRURITUS [None]
